FAERS Safety Report 7365149-2 (Version None)
Quarter: 2011Q1

REPORT INFORMATION
  Report Type: 
  Country: None (occurrence: None)
  Receive Date: 20110321
  Receipt Date: 20110316
  Transmission Date: 20110831
  Serious: Yes (Other)
  Sender: FDA-Public Use
  Company Number: VE-ABBOTT-11P-178-0712504-00

PATIENT
  Age: 23 Year
  Sex: Male
  Weight: 100 kg

DRUGS (3)
  1. AINES [Concomitant]
     Indication: ANKYLOSING SPONDYLITIS
     Route: 065
  2. HUMIRA [Suspect]
     Indication: ANKYLOSING SPONDYLITIS
     Route: 058
     Dates: start: 20070101, end: 20110201
  3. STEROIDS [Concomitant]
     Indication: ANKYLOSING SPONDYLITIS
     Route: 065
     Dates: end: 20110201

REACTIONS (1)
  - HAEMOLYTIC ANAEMIA [None]
